FAERS Safety Report 7620111-7 (Version None)
Quarter: 2011Q3

REPORT INFORMATION
  Report Type: 
  Country: None (occurrence: None)
  Receive Date: 20110719
  Receipt Date: 20110705
  Transmission Date: 20111222
  Serious: Yes (Other)
  Sender: FDA-Public Use
  Company Number: US-BAYER-2011-059287

PATIENT
  Age: 59 Year
  Sex: Male
  Weight: 82 kg

DRUGS (8)
  1. CLONAZEPAM [Concomitant]
     Dosage: UNK
  2. TRAMADOL HCL [Concomitant]
     Dosage: UNK
  3. ASPIRIN [Suspect]
     Indication: ISCHAEMIC HEART DISEASE PROPHYLAXIS
     Dosage: 1 DF, QD
     Route: 048
     Dates: start: 20110627, end: 20110630
  4. NAPROXEN SODIUM [Concomitant]
     Dosage: UNK
  5. PRISTIQ [Concomitant]
     Dosage: UNK
  6. SINEMET [Concomitant]
     Dosage: UNK
  7. LYRICA [Concomitant]
  8. NEBIVOLOL [Concomitant]
     Dosage: UNK

REACTIONS (2)
  - VISION BLURRED [None]
  - VISUAL FIELD DEFECT [None]
